FAERS Safety Report 7080803-8 (Version None)
Quarter: 2010Q4

REPORT INFORMATION
  Report Type: 
  Country: None (occurrence: None)
  Receive Date: 20101103
  Receipt Date: 20101019
  Transmission Date: 20110411
  Serious: Yes (Death, Other)
  Sender: FDA-Public Use
  Company Number: CA-AMGEN-CANSP2010000329

PATIENT

DRUGS (1)
  1. NEULASTA [Suspect]
     Route: 058

REACTIONS (6)
  - BLOOD PRESSURE DECREASED [None]
  - CARDIAC ARREST [None]
  - DEATH [None]
  - GASTRIC DILATATION [None]
  - HAEMORRHAGE [None]
  - MUSCULOSKELETAL PAIN [None]
